FAERS Safety Report 6068014-6 (Version None)
Quarter: 2009Q1

REPORT INFORMATION
  Report Type: 
  Country: None (occurrence: None)
  Receive Date: 20090206
  Receipt Date: 20090203
  Transmission Date: 20090719
  Serious: Yes (Hospitalization, Other)
  Sender: FDA-Public Use
  Company Number: US-BRISTOL-MYERS SQUIBB COMPANY-14493043

PATIENT
  Age: 51 Year
  Sex: Male
  Weight: 94 kg

DRUGS (5)
  1. ERBITUX [Suspect]
     Indication: HEAD AND NECK CANCER
     Dosage: START DATE OF FIRST COURSE: 11JUN07. CETUXIMAB 400 MG/M2 INITIAL 250 MG/M2 1-7 WEEKS.
     Dates: start: 20070709, end: 20070709
  2. CISPLATIN [Suspect]
     Indication: HEAD AND NECK CANCER
     Dosage: START DATE OF FIRST COURSE: 11JUN07. CISPLATIN 100 MG/M2 ON DAY 1 AND DAY 22.
     Dates: start: 20070709, end: 20070709
  3. RADIATION THERAPY [Suspect]
     Indication: HEAD AND NECK CANCER
     Dosage: 1 DOSAGE FORM = 4800 CGY. NUMBER OF FRACTIONS: 24. NUMBER OF ELASPSED DAYS: 2.
     Dates: start: 20070718, end: 20070718
  4. FENTANYL-75 [Concomitant]
  5. STEROIDS [Concomitant]

REACTIONS (3)
  - INFECTION [None]
  - RADIATION SKIN INJURY [None]
  - STOMATITIS [None]
